FAERS Safety Report 20460319 (Version 1)
Quarter: 2022Q1

REPORT INFORMATION
  Report Type: Spontaneous
  Country: GB (occurrence: GB)
  Receive Date: 20220211
  Receipt Date: 20220211
  Transmission Date: 20220423
  Serious: No
  Sender: FDA-Public Use
  Company Number: None

PATIENT

DRUGS (1)
  1. CEPHALEXIN [Suspect]
     Active Substance: CEPHALEXIN
     Indication: Urinary tract infection
     Dosage: 3 CAPSULE PER DAY EVERY 8 HOURS
     Route: 048
     Dates: start: 20201221, end: 20201227

REACTIONS (2)
  - Skin swelling [Unknown]
  - Rash pruritic [Unknown]
